FAERS Safety Report 4734544-X (Version None)
Quarter: 2005Q3

REPORT INFORMATION
  Report Type: 
  Country: None (occurrence: None)
  Receive Date: 20050729
  Receipt Date: 20050718
  Transmission Date: 20060218
  Serious: Yes (Hospitalization, Other)
  Sender: FDA-Public Use
  Company Number: HQWYE618311APR03

PATIENT
  Age: 39 Year
  Sex: Male
  Weight: 61.5 kg

DRUGS (10)
  1. RAPAMUNE [Suspect]
     Indication: PROPHYLAXIS AGAINST TRANSPLANT REJECTION
     Dosage: 5 MG 1X PER 1 DAY, ORAL
     Route: 048
     Dates: start: 20030205
  2. BACTRIM [Concomitant]
  3. GANCICLOVIR SODIUM [Concomitant]
  4. ATENOLOL [Concomitant]
  5. TENORMIN [Concomitant]
  6. PROCARDIA [Concomitant]
  7. IRON (IRON) [Concomitant]
  8. EPOGEN [Concomitant]
  9. CALCIUM CARBONATE (CALCIUM BACRBONATE) [Concomitant]
  10. MYCELEX [Concomitant]

REACTIONS (3)
  - DISEASE RECURRENCE [None]
  - LYMPHOCELE [None]
  - SEROMA [None]
